FAERS Safety Report 17712783 (Version 1)
Quarter: 2020Q2

REPORT INFORMATION
  Report Type: Spontaneous
  Country: CA (occurrence: CA)
  Receive Date: 20200427
  Receipt Date: 20200427
  Transmission Date: 20200714
  Serious: Yes (Other)
  Sender: FDA-Public Use
  Company Number: CA-SAMSUNG BIOEPIS-SB-2020-13671

PATIENT
  Age: 52 Year
  Sex: Female

DRUGS (3)
  1. CICLOSPORIN [Concomitant]
     Active Substance: CYCLOSPORINE
     Indication: PRODUCT USED FOR UNKNOWN INDICATION
     Route: 065
  2. CICLOSPORIN [Concomitant]
     Active Substance: CYCLOSPORINE
     Dosage: UNKNOWN
     Route: 065
  3. INFLIXIMAB [Suspect]
     Active Substance: INFLIXIMAB
     Indication: IRITIS
     Dosage: UNKNOWN
     Route: 042

REACTIONS (5)
  - Psoriasis [Unknown]
  - Product use in unapproved indication [Unknown]
  - Spondylitis [Unknown]
  - Psoriatic arthropathy [Unknown]
  - Off label use [Unknown]
